FAERS Safety Report 18625516 (Version 1)
Quarter: 2020Q4

REPORT INFORMATION
  Report Type: Spontaneous
  Country: DE (occurrence: DE)
  Receive Date: 20201217
  Receipt Date: 20201217
  Transmission Date: 20210114
  Serious: Yes (Other)
  Sender: FDA-Public Use
  Company Number: DE-AMGEN-DEUSP2020195105

PATIENT
  Age: 52 Year
  Sex: Female

DRUGS (3)
  1. PALBOCICLIB [Suspect]
     Active Substance: PALBOCICLIB
     Indication: PRODUCT USED FOR UNKNOWN INDICATION
     Dosage: 125 MG (DAILY FROM DAY 1-21 EVERY 4 WEEKS (D1-21 Q4W)
     Route: 065
     Dates: start: 201810
  2. FASLODEX [Suspect]
     Active Substance: FULVESTRANT
     Indication: PRODUCT USED FOR UNKNOWN INDICATION
     Dosage: 2 DF, Q4W (2X250 MG)
     Route: 065
     Dates: start: 201810
  3. DENOSUMAB [Suspect]
     Active Substance: DENOSUMAB
     Indication: PRODUCT USED FOR UNKNOWN INDICATION
     Dosage: 120 MG, Q4W
     Route: 065
     Dates: start: 201810

REACTIONS (5)
  - Adenocarcinoma metastatic [Unknown]
  - Tumour marker abnormal [Unknown]
  - Metastases to liver [Unknown]
  - Alanine aminotransferase increased [Unknown]
  - Aspartate aminotransferase increased [Unknown]

NARRATIVE: CASE EVENT DATE: 201904
